FAERS Safety Report 18559217 (Version 2)
Quarter: 2021Q1

REPORT INFORMATION
  Report Type: Other
  Country: DE (occurrence: DE)
  Receive Date: 20201130
  Receipt Date: 20210208
  Transmission Date: 20210419
  Serious: Yes (Hospitalization)
  Sender: FDA-Public Use
  Company Number: DE-ROCHE-2718672

PATIENT
  Age: 76 Year
  Sex: Female

DRUGS (10)
  1. VITAMIN D3 [Concomitant]
     Active Substance: CHOLECALCIFEROL
  2. ALENDRONIC ACID [Concomitant]
     Active Substance: ALENDRONIC ACID
  3. PANTOPRAZOLE [Concomitant]
     Active Substance: PANTOPRAZOLE
  4. CELEBREX [Concomitant]
     Active Substance: CELECOXIB
  5. DULOXETINE. [Concomitant]
     Active Substance: DULOXETINE
  6. PREDNISOLONE. [Concomitant]
     Active Substance: PREDNISOLONE
  7. GABAPENTIN. [Concomitant]
     Active Substance: GABAPENTIN
  8. TOCILIZUMAB. [Suspect]
     Active Substance: TOCILIZUMAB
     Indication: RHEUMATOID ARTHRITIS
     Route: 058
  9. METOPROLOL. [Concomitant]
     Active Substance: METOPROLOL
  10. CETIRIZINE [Concomitant]
     Active Substance: CETIRIZINE HYDROCHLORIDE

REACTIONS (3)
  - Abdominal symptom [Not Recovered/Not Resolved]
  - B-cell small lymphocytic lymphoma [Not Recovered/Not Resolved]
  - Lymphocytic leukaemia [Not Recovered/Not Resolved]

NARRATIVE: CASE EVENT DATE: 202007
